FAERS Safety Report 9451494 (Version 2)
Quarter: 2013Q3

REPORT INFORMATION
  Report Type: Spontaneous
  Country: CO (occurrence: CO)
  Receive Date: 20130810
  Receipt Date: 20130816
  Transmission Date: 20140515
  Serious: Yes (Other)
  Sender: FDA-Public Use
  Company Number: CO-MERCK-1308COL002944

PATIENT
  Age: 49 Year
  Sex: Female
  Weight: 64 kg

DRUGS (3)
  1. REBETOL [Suspect]
     Indication: HEPATITIS C
     Dosage: DAILY DOSE: 1000 MG
     Route: 048
     Dates: start: 20130622, end: 201307
  2. REBETOL [Suspect]
     Dosage: DAILY DOSE: 800 MG
     Route: 048
     Dates: start: 201307
  3. PEG-INTRON [Suspect]
     Indication: HEPATITIS C
     Dosage: 100 MICROGRAM, QW, REDIPEN
     Route: 058
     Dates: start: 20130622

REACTIONS (3)
  - Neutropenia [Not Recovered/Not Resolved]
  - Anaemia [Not Recovered/Not Resolved]
  - Weight increased [Unknown]
